FAERS Safety Report 11783380 (Version 1)
Quarter: 2015Q4

REPORT INFORMATION
  Report Type: Report from Study
  Country: US (occurrence: US)
  Receive Date: 20151127
  Receipt Date: 20151127
  Transmission Date: 20160305
  Serious: Yes (Life-Threatening)
  Sender: FDA-Public Use
  Company Number: PHEH2015US024759

PATIENT
  Sex: Male
  Weight: 58.96 kg

DRUGS (1)
  1. AFINITOR [Suspect]
     Active Substance: EVEROLIMUS
     Indication: BLADDER CANCER
     Dosage: 5 MG, QD
     Route: 048
     Dates: start: 20150810, end: 20150927

REACTIONS (1)
  - Bladder cancer [Unknown]
